FAERS Safety Report 15947076 (Version 1)
Quarter: 2019Q1

REPORT INFORMATION
  Report Type: Spontaneous
  Country: US (occurrence: US)
  Receive Date: 20190211
  Receipt Date: 20190211
  Transmission Date: 20190417
  Serious: No
  Sender: FDA-Public Use
  Company Number: US-PFIZER INC-2019056821

PATIENT
  Age: 64 Year
  Sex: Male

DRUGS (2)
  1. ROFECOXIB [Suspect]
     Active Substance: ROFECOXIB
     Dosage: UNK
  2. IBUPROFEN. [Suspect]
     Active Substance: IBUPROFEN
     Dosage: UNK
     Dates: start: 20190129

REACTIONS (1)
  - Drug hypersensitivity [Unknown]
